FAERS Safety Report 10235414 (Version 1)
Quarter: 2014Q2

REPORT INFORMATION
  Report Type: Spontaneous
  Country: US (occurrence: US)
  Receive Date: 20140613
  Receipt Date: 20140613
  Transmission Date: 20141212
  Serious: Yes (Hospitalization)
  Sender: FDA-Public Use
  Company Number: US-BAYER-2014-081441

PATIENT
  Age: 25 Year
  Sex: Female
  Weight: 49.89 kg

DRUGS (3)
  1. BEYAZ [Suspect]
     Indication: CONTRACEPTION
  2. MULTIVITAMINS [Concomitant]
  3. LORCET-HD [Concomitant]
     Indication: PAIN

REACTIONS (1)
  - Pulmonary embolism [Recovering/Resolving]
